FAERS Safety Report 11203088 (Version 1)
Quarter: 2015Q2

REPORT INFORMATION
  Report Type: Spontaneous
  Country: US (occurrence: US)
  Receive Date: 20150619
  Receipt Date: 20150619
  Transmission Date: 20150821
  Serious: No
  Sender: FDA-Public Use
  Company Number: US-ASTRAZENECA-2015SE57402

PATIENT
  Age: 29 Year
  Sex: Male

DRUGS (12)
  1. DIFLUCAN [Concomitant]
     Active Substance: FLUCONAZOLE
  2. ZOSYN [Concomitant]
     Active Substance: PIPERACILLIN SODIUM\TAZOBACTAM SODIUM
  3. VFEND [Concomitant]
     Active Substance: VORICONAZOLE
     Route: 048
  4. OPIOID TAPER [Concomitant]
  5. ZYVOX [Concomitant]
     Active Substance: LINEZOLID
  6. COLAZAL [Concomitant]
     Active Substance: BALSALAZIDE DISODIUM
  7. NOXAFIL [Concomitant]
     Active Substance: POSACONAZOLE
     Indication: NEUTROPENIA
  8. MERREM [Suspect]
     Active Substance: MEROPENEM
     Indication: FEBRILE NEUTROPENIA
     Route: 042
  9. FLUDARABINE [Concomitant]
     Active Substance: FLUDARABINE PHOSPHATE
  10. CYTARABINE. [Concomitant]
     Active Substance: CYTARABINE
  11. COLAZAL [Concomitant]
     Active Substance: BALSALAZIDE DISODIUM
  12. VANCOMYCIN [Suspect]
     Active Substance: VANCOMYCIN
     Indication: FEBRILE NEUTROPENIA
     Route: 065

REACTIONS (3)
  - Haemorrhoids [Recovered/Resolved]
  - Tachycardia [Unknown]
  - Abdominal pain [Unknown]
